FAERS Safety Report 7493962-X (Version None)
Quarter: 2011Q2

REPORT INFORMATION
  Report Type: 
  Country: None (occurrence: None)
  Receive Date: 20110520
  Receipt Date: 20110513
  Transmission Date: 20111010
  Serious: Yes (Death, Other)
  Sender: FDA-Public Use
  Company Number: GB-ROCHE-777618

PATIENT
  Age: 77 Year
  Sex: Male

DRUGS (7)
  1. NAPROXEN [Suspect]
     Route: 048
  2. ASPIRIN [Suspect]
     Route: 048
  3. RAMIPRIL [Concomitant]
  4. LUCENTIS [Suspect]
     Indication: AGE-RELATED MACULAR DEGENERATION
     Route: 065
     Dates: start: 20090129, end: 20090409
  5. ESOMEPRAZOLE MAGNESIUM [Concomitant]
  6. BENDROFLUAZIDE [Concomitant]
  7. SIMVASTATIN [Concomitant]

REACTIONS (4)
  - URINARY TRACT INFECTION [None]
  - HAEMATEMESIS [None]
  - TRANSIENT ISCHAEMIC ATTACK [None]
  - CEREBROVASCULAR ACCIDENT [None]
